FAERS Safety Report 7053319-2 (Version None)
Quarter: 2010Q4

REPORT INFORMATION
  Report Type: 
  Country: None (occurrence: None)
  Receive Date: 20101020
  Receipt Date: 20101013
  Transmission Date: 20110411
  Serious: Yes (Life-Threatening, Hospitalization)
  Sender: FDA-Public Use
  Company Number: PHHY2010US66839

PATIENT
  Sex: Male

DRUGS (5)
  1. RECLAST [Suspect]
     Indication: OSTEONECROSIS
     Dosage: 5 MG, ONCE PER YEAR
     Route: 042
     Dates: start: 20100930
  2. VICODIN [Concomitant]
  3. VOLTAREN                           /00372303/ [Concomitant]
  4. XYZAL [Concomitant]
  5. PERCOCET [Concomitant]

REACTIONS (8)
  - ABDOMINAL PAIN [None]
  - ARTHRALGIA [None]
  - BONE PAIN [None]
  - DECREASED APPETITE [None]
  - ILEUS [None]
  - PANCREATITIS [None]
  - PYREXIA [None]
  - SKIN IRRITATION [None]
